FAERS Safety Report 22325356 (Version 1)
Quarter: 2023Q2

REPORT INFORMATION
  Report Type: Spontaneous
  Country: US (occurrence: US)
  Receive Date: 20230516
  Receipt Date: 20230516
  Transmission Date: 20230721
  Serious: No
  Sender: FDA-Public Use
  Company Number: US-MYLANLABS-2023M1050010

PATIENT
  Sex: Female
  Weight: 74.84 kg

DRUGS (3)
  1. VERAPAMIL HYDROCHLORIDE [Suspect]
     Active Substance: VERAPAMIL HYDROCHLORIDE
     Indication: Hypertension
     Dosage: QD (TO BE TAKEN EVERY EVENING; BEFORE BED )
     Route: 065
  2. METOPROLOL TARTRATE [Suspect]
     Active Substance: METOPROLOL TARTRATE
     Indication: Hypertension
     Dosage: 25 MG, QD (TO BE TAKEN AS A BACK-UP WHEN PRESSURE ELEVATES; 1 EVERY NIGHT BEFORE GOING TO BED)
     Route: 065
  3. PREDNISONE [Concomitant]
     Active Substance: PREDNISONE
     Indication: Polymyalgia rheumatica
     Dosage: 8 MILLIGRAM, QD
     Route: 065

REACTIONS (2)
  - Sensation of foreign body [Unknown]
  - Labelled drug-drug interaction medication error [Unknown]
